FAERS Safety Report 4306007-7 (Version None)
Quarter: 2004Q1

REPORT INFORMATION
  Report Type: 
  Country: None (occurrence: None)
  Receive Date: 20040225
  Receipt Date: 20040210
  Transmission Date: 20041129
  Serious: Yes (Death)
  Sender: FDA-Public Use
  Company Number: USA040258946

PATIENT
  Sex: Female

DRUGS (1)
  1. PROZAC [Suspect]
     Indication: DEPRESSION
     Dosage: 80 MG/DAY

REACTIONS (3)
  - COMPLETED SUICIDE [None]
  - DRUG LEVEL INCREASED [None]
  - MURDER [None]
